FAERS Safety Report 6261749-1 (Version None)
Quarter: 2009Q3

REPORT INFORMATION
  Report Type: 
  Country: None (occurrence: None)
  Receive Date: 20090709
  Receipt Date: 20090629
  Transmission Date: 20100115
  Serious: Yes (Hospitalization)
  Sender: FDA-Public Use
  Company Number: JP-JNJFOC-20090609287

PATIENT
  Sex: Female
  Weight: 52 kg

DRUGS (23)
  1. GOLIMUMAB [Suspect]
     Route: 058
  2. GOLIMUMAB [Suspect]
     Route: 058
  3. GOLIMUMAB [Suspect]
     Route: 058
  4. GOLIMUMAB [Suspect]
     Indication: RHEUMATOID ARTHRITIS
     Route: 058
  5. PLACEBO [Suspect]
     Route: 058
  6. PLACEBO [Suspect]
     Route: 058
  7. PLACEBO [Suspect]
     Route: 058
  8. PLACEBO [Suspect]
     Route: 058
  9. PLACEBO [Suspect]
     Route: 058
  10. PLACEBO [Suspect]
     Indication: RHEUMATOID ARTHRITIS
     Route: 058
  11. CELECOX [Suspect]
     Indication: RHEUMATOID ARTHRITIS
     Route: 048
  12. PREDNISOLONE [Suspect]
     Indication: RHEUMATOID ARTHRITIS
     Route: 048
  13. FERO-GRADUMET [Suspect]
     Indication: IRON DEFICIENCY ANAEMIA
     Route: 048
  14. RHEUMATREX [Concomitant]
     Indication: RHEUMATOID ARTHRITIS
     Route: 048
  15. NSAID [Concomitant]
  16. FOLIAMIN [Concomitant]
     Indication: PROPHYLAXIS
     Route: 048
  17. GASLON N [Concomitant]
     Indication: GASTRITIS
     Route: 048
  18. MOHRUS TAPE [Concomitant]
     Indication: RHEUMATOID ARTHRITIS
     Route: 062
  19. ALFAROL [Concomitant]
     Indication: OSTEOPOROSIS PROPHYLAXIS
     Route: 048
  20. ACTONEL [Concomitant]
     Indication: OSTEOPOROSIS PROPHYLAXIS
     Route: 048
  21. NORVASC [Concomitant]
     Route: 048
  22. NORVASC [Concomitant]
     Indication: HYPERTENSION
     Route: 048
  23. GASTER D [Concomitant]
     Indication: GASTRITIS
     Route: 048

REACTIONS (1)
  - DUODENAL ULCER [None]
